FAERS Safety Report 19706075 (Version 1)
Quarter: 2021Q3

REPORT INFORMATION
  Report Type: Spontaneous
  Country: DE (occurrence: DE)
  Receive Date: 20210817
  Receipt Date: 20210817
  Transmission Date: 20211014
  Serious: Yes (Hospitalization)
  Sender: FDA-Public Use
  Company Number: DE-TEVA-2021-DE-1941181

PATIENT
  Age: 52 Year
  Sex: Male
  Weight: 80 kg

DRUGS (3)
  1. FONDAPARINUX [Concomitant]
     Active Substance: FONDAPARINUX
     Dosage: 1 DOSAGE FORMS DAILY; 1 FS, 0?0?1?0
  2. ROSUVASTATIN. [Concomitant]
     Active Substance: ROSUVASTATIN
     Dosage: 40 MILLIGRAM DAILY; 0?0?1?0
  3. EZETIMIB [Suspect]
     Active Substance: EZETIMIBE
     Dosage: 10 MILLIGRAM DAILY;  0?0?1?0
     Route: 065

REACTIONS (5)
  - Tachycardia [Unknown]
  - Restlessness [Unknown]
  - Dizziness [Unknown]
  - Paraesthesia [Unknown]
  - Hyperhidrosis [Unknown]
